FAERS Safety Report 10226250 (Version 1)
Quarter: 2014Q2

REPORT INFORMATION
  Report Type: Spontaneous
  Country: IT (occurrence: IT)
  Receive Date: 20140609
  Receipt Date: 20140609
  Transmission Date: 20141212
  Serious: Yes (Hospitalization)
  Sender: FDA-Public Use
  Company Number: IT-ACTAVIS-2013-25237

PATIENT
  Age: 76 Year
  Sex: Male

DRUGS (2)
  1. CLOPIDOGREL (UNKNOWN) [Suspect]
     Indication: PRODUCT USED FOR UNKNOWN INDICATION
     Route: 048
     Dates: start: 20131002, end: 20131002
  2. PRASUGREL [Concomitant]
     Indication: ARTERIAL RESTENOSIS
     Route: 065
     Dates: start: 20131002

REACTIONS (1)
  - Arterial restenosis [Recovered/Resolved]
